FAERS Safety Report 16911558 (Version 1)
Quarter: 2019Q4

REPORT INFORMATION
  Report Type: Spontaneous
  Country: US (occurrence: US)
  Receive Date: 20191013
  Receipt Date: 20191013
  Transmission Date: 20200122
  Serious: No
  Sender: FDA-Public Use
  Company Number: US-C B FLEET CO INC-201812-US-003079

PATIENT
  Sex: Female

DRUGS (1)
  1. MONISTAT 7 WITH REUSABLE APPLICATOR [Suspect]
     Active Substance: MICONAZOLE NITRATE
     Indication: FUNGAL INFECTION
     Dosage: UNKNOWN HOW MUCH CONSUMER USED ON OUTSIDE OF VAGINA
     Route: 061

REACTIONS (3)
  - Vulvovaginal swelling [Recovering/Resolving]
  - Vulvovaginal rash [Recovering/Resolving]
  - Wrong technique in product usage process [None]
